FAERS Safety Report 7210316-1 (Version None)
Quarter: 2011Q1

REPORT INFORMATION
  Report Type: 
  Country: None (occurrence: None)
  Receive Date: 20110103
  Receipt Date: 20110103
  Transmission Date: 20110831
  Serious: Yes (Hospitalization)
  Sender: FDA-Public Use
  Company Number: None

PATIENT
  Age: 85 Year
  Sex: Male
  Weight: 80.3 kg

DRUGS (1)
  1. WARFARIN SODIUM [Suspect]
     Indication: DEEP VEIN THROMBOSIS
     Dosage: PO
     Route: 048
     Dates: start: 20100315, end: 20100813

REACTIONS (7)
  - HAEMORRHAGE [None]
  - INTERNATIONAL NORMALISED RATIO ABNORMAL [None]
  - ANAEMIA [None]
  - HAEMATOCHEZIA [None]
  - DIZZINESS [None]
  - ASTHENIA [None]
  - GASTRIC HAEMORRHAGE [None]
